FAERS Safety Report 11614106 (Version 3)
Quarter: 2016Q1

REPORT INFORMATION
  Report Type: Report from Study
  Country: US (occurrence: US)
  Receive Date: 20151008
  Receipt Date: 20160115
  Transmission Date: 20160525
  Serious: Yes (Other)
  Sender: FDA-Public Use
  Company Number: US-TEVA-599015USA

PATIENT
  Age: 21 Year
  Sex: Female

DRUGS (1)
  1. CLARAVIS [Suspect]
     Active Substance: ISOTRETINOIN
     Indication: ACNE CYSTIC
     Dosage: 80 MILLIGRAM DAILY;
     Route: 048
     Dates: start: 20150915, end: 20150930

REACTIONS (1)
  - Unintended pregnancy [Unknown]

NARRATIVE: CASE EVENT DATE: 20150913
